FAERS Safety Report 11106790 (Version 2)
Quarter: 2015Q2

REPORT INFORMATION
  Report Type: Spontaneous
  Country: US (occurrence: US)
  Receive Date: 20150512
  Receipt Date: 20150617
  Transmission Date: 20150821
  Serious: No
  Sender: FDA-Public Use
  Company Number: US-PFIZER INC-2015155591

PATIENT
  Age: 68 Year
  Sex: Female
  Weight: 52.15 kg

DRUGS (7)
  1. MAGNESIUM [Concomitant]
     Active Substance: MAGNESIUM
     Indication: FIBROMYALGIA
     Dosage: 500 MG, 2X/DAY
  2. MANGANESE [Concomitant]
     Active Substance: MANGANESE\MANGANESE CHLORIDE
     Indication: FIBROMYALGIA
     Dosage: 50 MG, 1X/DAY
  3. COENZYME Q10 [Concomitant]
     Active Substance: UBIDECARENONE
     Indication: FIBROMYALGIA
     Dosage: 50 MG, 3X/DAY
  4. FISH OIL [Concomitant]
     Active Substance: FISH OIL
     Indication: FIBROMYALGIA
     Dosage: 1000 MG, 4X/DAY
  5. CALCIUM SACHETS [Concomitant]
     Indication: FIBROMYALGIA
     Dosage: 500 MG, 3X/DAY
  6. CELEBREX [Suspect]
     Active Substance: CELECOXIB
     Indication: BACK PAIN
     Dosage: 1 DF, 2X/DAY
  7. CYMBALTA [Suspect]
     Active Substance: DULOXETINE HYDROCHLORIDE
     Indication: FIBROMYALGIA
     Dosage: 30 MG, 1X/DAY

REACTIONS (1)
  - Rash generalised [Unknown]
